FAERS Safety Report 6866016-0 (Version None)
Quarter: 2010Q3

REPORT INFORMATION
  Report Type: 
  Country: None (occurrence: None)
  Receive Date: 20100719
  Receipt Date: 20100712
  Transmission Date: 20110219
  Serious: Yes (Death, Life-Threatening, Hospitalization)
  Sender: FDA-Public Use
  Company Number: A-CH2010-35821

PATIENT
  Age: 80 Year
  Sex: Male
  Weight: 62 kg

DRUGS (11)
  1. TRACLEER [Suspect]
     Indication: PULMONARY HYPERTENSION
     Dosage: 62.5 MG, BID, ORAL
     Route: 048
     Dates: start: 20100406, end: 20100409
  2. ERYTHROMYCIN ETHYLSUCCINATE [Concomitant]
  3. CANDESARTAN CILEXETIL [Concomitant]
  4. FEXOFENADINE HYDROCHLORIDE [Concomitant]
  5. THEOPHYLLINE [Concomitant]
  6. AMBROXOL HYDROCHLORIDE (AMBROXOL HYDROCHLORIDE) [Concomitant]
  7. CLOSTRIDIUM BUTYRICUM (CLOSTRIDIUM BUTYRICUM) [Concomitant]
  8. FELBINAC (FELBINAC) [Concomitant]
  9. ADVAIR HFA [Concomitant]
  10. OXYGEN (OXYGEN) [Concomitant]
  11. MAGNESIUM OXIDE (MAGNESIUM OXIDE) [Concomitant]

REACTIONS (2)
  - CHRONIC OBSTRUCTIVE PULMONARY DISEASE [None]
  - RESPIRATORY FAILURE [None]
